FAERS Safety Report 23230227 (Version 1)
Quarter: 2023Q4

REPORT INFORMATION
  Report Type: Spontaneous
  Country: US (occurrence: None)
  Receive Date: 20231122
  Receipt Date: 20231122
  Transmission Date: 20240110
  Serious: No
  Sender: FDA-Public Use
  Company Number: None

PATIENT
  Age: 28 Year
  Sex: Male
  Weight: 65 kg

DRUGS (2)
  1. LYRICA [Suspect]
     Active Substance: PREGABALIN
     Indication: Anxiety
     Dosage: OTHER QUANTITY : 56 CAPSULE(S);?FREQUENCY : EVERY 6 HOURS;?
     Route: 048
     Dates: start: 20230719, end: 20231101
  2. EFFEXOR [Concomitant]
     Active Substance: VENLAFAXINE HYDROCHLORIDE

REACTIONS (8)
  - Tinnitus [None]
  - Ear discomfort [None]
  - Migraine [None]
  - Myalgia [None]
  - Deafness unilateral [None]
  - Vision blurred [None]
  - Aphasia [None]
  - Aura [None]

NARRATIVE: CASE EVENT DATE: 20230808
